FAERS Safety Report 22616696 (Version 1)
Quarter: 2023Q2

REPORT INFORMATION
  Report Type: Report from Study
  Country: US (occurrence: US)
  Receive Date: 20230619
  Receipt Date: 20230619
  Transmission Date: 20230721
  Serious: Yes (Other)
  Sender: FDA-Public Use
  Company Number: US-ABBVIE-5294034

PATIENT
  Sex: Male

DRUGS (1)
  1. RINVOQ [Suspect]
     Active Substance: UPADACITINIB
     Indication: Psoriasis
     Route: 048
     Dates: start: 20221221, end: 2023

REACTIONS (5)
  - Pneumothorax [Recovering/Resolving]
  - Fall [Recovering/Resolving]
  - Multiple fractures [Recovering/Resolving]
  - Blood disorder [Recovering/Resolving]
  - Dizziness [Recovering/Resolving]
